FAERS Safety Report 5196619-3 (Version None)
Quarter: 2007Q1

REPORT INFORMATION
  Report Type: 
  Country: None (occurrence: None)
  Receive Date: 20070103
  Receipt Date: 20061222
  Transmission Date: 20070707
  Serious: Yes (Hospitalization)
  Sender: FDA-Public Use
  Company Number: PHHO2006AU19411

PATIENT
  Age: 74 Year
  Sex: Female

DRUGS (2)
  1. NATEGLINIDE [Suspect]
     Indication: GLUCOSE TOLERANCE IMPAIRED
     Dosage: CODE NOT BROKEN
     Route: 048
     Dates: start: 20030704, end: 20061020
  2. PLACEBO OR VALSARTAN [Suspect]
     Indication: CARDIOVASCULAR DISORDER
     Dosage: CODE NOT BROKEN
     Route: 048
     Dates: start: 20030704, end: 20061020

REACTIONS (3)
  - HEADACHE [None]
  - PLEURISY [None]
  - PNEUMONIA [None]
